FAERS Safety Report 10227541 (Version 1)
Quarter: 2014Q2

REPORT INFORMATION
  Report Type: Report from Study
  Country: US (occurrence: US)
  Receive Date: 20140610
  Receipt Date: 20140610
  Transmission Date: 20141212
  Serious: No
  Sender: FDA-Public Use
  Company Number: PHEH2014US011565

PATIENT
  Sex: Female
  Weight: 49.89 kg

DRUGS (12)
  1. TASIGNA [Suspect]
     Indication: GASTROINTESTINAL STROMAL TUMOUR
     Dosage: 150 MG, BID
     Route: 048
     Dates: start: 20140426
  2. TASIGNA [Suspect]
     Indication: OFF LABEL USE
  3. PHENERGAN//PROMETHAZINE [Concomitant]
     Dosage: UNK UKN, UNK
  4. VENLAFAXINE [Concomitant]
     Dosage: UNK UKN, UNK
  5. FLUCONAZOLE [Concomitant]
     Dosage: UNK UKN, UNK
  6. WELCHOL [Concomitant]
     Dosage: UNK UKN, UNK
  7. TRAMADOL [Concomitant]
     Dosage: UNK UKN, UNK
  8. POTASSIUM [Concomitant]
     Dosage: UNK UKN, UNK
  9. OXYCODONE [Concomitant]
     Dosage: UNK UKN, UNK
  10. HYOSCYAMINE [Concomitant]
     Dosage: UNK UKN, UNK
  11. BRIMONIDINE [Concomitant]
     Dosage: UNK UKN, UNK
  12. ARLEXEN [Concomitant]
     Dosage: UNK UKN, UNK

REACTIONS (2)
  - Ageusia [Unknown]
  - Decreased appetite [Unknown]
